FAERS Safety Report 6295034-9 (Version None)
Quarter: 2009Q3

REPORT INFORMATION
  Report Type: 
  Country: None (occurrence: None)
  Receive Date: 20090803
  Receipt Date: 20090722
  Transmission Date: 20100115
  Serious: Yes (Hospitalization)
  Sender: FDA-Public Use
  Company Number: FR-PFIZER INC-2009243774

PATIENT
  Age: 87 Year

DRUGS (16)
  1. ZOLOFT [Suspect]
     Route: 048
  2. SECTRAL [Suspect]
     Route: 048
  3. NISISCO [Suspect]
     Route: 048
  4. NITROGLYCERIN [Suspect]
     Route: 062
  5. DOMPERIDONE [Suspect]
     Dosage: 10 MG, UNK
     Route: 048
  6. TROSPIUM CHLORIDE [Suspect]
     Dosage: 20 MG, UNK
     Route: 048
  7. STILNOX [Suspect]
     Dosage: 10 MG, UNK
     Route: 048
  8. FOSAMAX [Concomitant]
  9. CACIT D3 [Concomitant]
  10. DAFALGAN [Concomitant]
  11. GAVISCON [Concomitant]
  12. NEXIUM [Concomitant]
  13. MYCOSTER [Concomitant]
  14. ALTIM [Concomitant]
  15. TRANSULOSE [Concomitant]
  16. KARDEGIC [Concomitant]

REACTIONS (1)
  - FALL [None]
